FAERS Safety Report 6826012-6 (Version None)
Quarter: 2010Q3

REPORT INFORMATION
  Report Type: 
  Country: None (occurrence: None)
  Receive Date: 20100707
  Receipt Date: 20100707
  Transmission Date: 20110219
  Serious: Yes (Other)
  Sender: FDA-Public Use
  Company Number: None

PATIENT
  Sex: Male
  Weight: 56.6996 kg

DRUGS (1)
  1. CARVEDILOL [Suspect]
     Dosage: 6.25 MG 2X DAILY ORAL
     Route: 048
     Dates: start: 20091116, end: 20100607

REACTIONS (2)
  - NIGHTMARE [None]
  - TREMOR [None]
